FAERS Safety Report 13881904 (Version 3)
Quarter: 2017Q3

REPORT INFORMATION
  Report Type: Report from Study
  Country: CZ (occurrence: CZ)
  Receive Date: 20170818
  Receipt Date: 20170908
  Transmission Date: 20171127
  Serious: Yes (Hospitalization, Other)
  Sender: FDA-Public Use
  Company Number: CZ-BAYER-2017-132178

PATIENT
  Age: 22 Year
  Sex: Female
  Weight: 63 kg

DRUGS (1)
  1. JAYDESS [Suspect]
     Active Substance: LEVONORGESTREL
     Indication: CONTRACEPTION
     Dosage: 14 MCG/24HR, CONT
     Route: 015
     Dates: start: 20160112, end: 20170123

REACTIONS (13)
  - Abdominal pain lower [Recovered/Resolved]
  - Haematosalpinx [Recovered/Resolved]
  - Ectopic pregnancy with contraceptive device [Recovered/Resolved]
  - Ovarian cyst ruptured [None]
  - Abdominal distension [Recovered/Resolved]
  - Drug ineffective [None]
  - Ovarian cyst [None]
  - Dysuria [Recovered/Resolved]
  - Peritoneal haemorrhage [Recovered/Resolved]
  - Flatulence [Recovered/Resolved]
  - Abortion of ectopic pregnancy [Recovered/Resolved]
  - Haemorrhage in pregnancy [Recovered/Resolved]
  - Diarrhoea [Recovered/Resolved]

NARRATIVE: CASE EVENT DATE: 201701
